FAERS Safety Report 6612903-8 (Version None)
Quarter: 2010Q1

REPORT INFORMATION
  Report Type: 
  Country: None (occurrence: None)
  Receive Date: 20100304
  Receipt Date: 20100217
  Transmission Date: 20100710
  Serious: Yes (Other)
  Sender: FDA-Public Use
  Company Number: GB-MYLANLABS-2010S1002703

PATIENT
  Sex: Male

DRUGS (5)
  1. FELODIPINE [Suspect]
     Indication: HYPERTENSION
     Route: 048
     Dates: start: 20090929, end: 20091102
  2. FENTANYL [Concomitant]
     Indication: DRUG USE FOR UNKNOWN INDICATION
     Route: 062
  3. LACTULOSE [Concomitant]
     Indication: CONSTIPATION
     Route: 048
  4. SENNA [Concomitant]
     Indication: CONSTIPATION
     Route: 048
  5. SEVREDOL [Concomitant]
     Indication: BACK PAIN
     Route: 048

REACTIONS (2)
  - ORAL DISCOMFORT [None]
  - TOOTH LOSS [None]
